FAERS Safety Report 9147101 (Version 2)
Quarter: 2013Q1

REPORT INFORMATION
  Report Type: Spontaneous
  Country: US (occurrence: US)
  Receive Date: 20130307
  Receipt Date: 20130319
  Transmission Date: 20140127
  Serious: Yes (Hospitalization)
  Sender: FDA-Public Use
  Company Number: US-GILEAD-2013-0071186

PATIENT
  Sex: Female

DRUGS (2)
  1. LETAIRIS [Suspect]
     Indication: CHRONIC OBSTRUCTIVE PULMONARY DISEASE
     Dosage: 5 MG, QD
     Route: 048
     Dates: start: 20090718
  2. LETAIRIS [Suspect]
     Indication: RESPIRATORY FAILURE

REACTIONS (2)
  - Pulmonary arterial hypertension [Unknown]
  - Dyspnoea [Unknown]
